FAERS Safety Report 7751217-X (Version None)
Quarter: 2011Q3

REPORT INFORMATION
  Report Type: 
  Country: None (occurrence: None)
  Receive Date: 20110914
  Receipt Date: 20080709
  Transmission Date: 20111222
  Serious: Yes (Death)
  Sender: FDA-Public Use
  Company Number: PHHY2008NL37308

PATIENT
  Sex: Male

DRUGS (2)
  1. SANDOSTATIN LAR [Suspect]
     Dosage: 20 MG ONCE PER 4 WEEKS
     Dates: start: 20080617
  2. SANDOSTATIN LAR [Suspect]
     Indication: DIARRHOEA
     Dosage: 20 MG, ONCE PER 4 WEEKS
     Dates: start: 20070808, end: 20080617

REACTIONS (1)
  - DEATH [None]
